FAERS Safety Report 9062654 (Version 1)
Quarter: 2013Q1

REPORT INFORMATION
  Report Type: Spontaneous
  Country: US (occurrence: US)
  Receive Date: 20130213
  Receipt Date: 20130213
  Transmission Date: 20140127
  Serious: Yes (Other)
  Sender: FDA-Public Use
  Company Number: US-NICOBRDEVP-2013-01613

PATIENT
  Age: 82 None
  Sex: Female
  Weight: 57 kg

DRUGS (1)
  1. PREDNISONE (WATSON LABORATORIES) [Suspect]
     Indication: PULMONARY CONGESTION
     Dosage: UNK
     Route: 048
     Dates: start: 20121229, end: 20121230

REACTIONS (2)
  - Deafness bilateral [Not Recovered/Not Resolved]
  - Nightmare [Recovered/Resolved]
